FAERS Safety Report 10581519 (Version 1)
Quarter: 2014Q4

REPORT INFORMATION
  Report Type: Report from Study
  Country: JP (occurrence: JP)
  Receive Date: 20141113
  Receipt Date: 20141113
  Transmission Date: 20150529
  Serious: Yes (Other)
  Sender: FDA-Public Use
  Company Number: PHHY2014JP144314

PATIENT
  Age: 64 Year
  Sex: Female
  Weight: 73 kg

DRUGS (43)
  1. HUMULIN N [Concomitant]
     Active Substance: INSULIN HUMAN
     Indication: TYPE 2 DIABETES MELLITUS
     Dosage: 4 IU, UNK
     Route: 065
     Dates: start: 20131209, end: 20140114
  2. LOXONIN [Concomitant]
     Active Substance: LOXOPROFEN SODIUM
     Dosage: 180 MG, UNK
     Route: 048
  3. LIPITOR [Concomitant]
     Active Substance: ATORVASTATIN CALCIUM
     Indication: DYSLIPIDAEMIA
     Route: 048
  4. ZETIA [Concomitant]
     Active Substance: EZETIMIBE
     Indication: DYSLIPIDAEMIA
     Route: 048
     Dates: end: 20131219
  5. BASEN//VOGLIBOSE [Suspect]
     Active Substance: VOGLIBOSE
     Indication: TYPE 2 DIABETES MELLITUS
     Dosage: 0.6 MG, QD
     Route: 048
     Dates: start: 20131115, end: 20131118
  6. MEDICON (DEXTROMETHORPHAN HYDROBROMIDE) [Concomitant]
     Active Substance: DEXTROMETHORPHAN HYDROBROMIDE
     Indication: TYPE 2 DIABETES MELLITUS
     Dosage: 45 MG, UNK
     Route: 048
     Dates: start: 20140912
  7. NEXIUM [Concomitant]
     Active Substance: ESOMEPRAZOLE MAGNESIUM
     Indication: PROPHYLAXIS
     Route: 048
  8. PROMAC//POLAPREZINC [Concomitant]
     Indication: PROPHYLAXIS
     Route: 048
     Dates: start: 20141017
  9. HUMULIN R [Concomitant]
     Active Substance: INSULIN HUMAN
     Indication: TYPE 2 DIABETES MELLITUS
     Dosage: 22 IU, UNK
     Route: 065
     Dates: start: 20131104, end: 20131124
  10. MUCOSTA [Concomitant]
     Active Substance: REBAMIPIDE
     Indication: PROPHYLAXIS
     Dosage: 300 MG, UNK
     Route: 048
  11. MUCOSTA [Concomitant]
     Active Substance: REBAMIPIDE
     Dosage: 300 MG, UNK
     Route: 048
  12. FLOMOX//CEFCAPENE PIVOXIL HYDROCHLORIDE [Concomitant]
     Active Substance: CEFCAPENE PIVOXIL HYDROCHLORIDE HYDRATE
     Indication: TYPE 2 DIABETES MELLITUS
     Dosage: 200 MG, UNK
     Route: 048
     Dates: start: 20140808
  13. SAMSCA [Concomitant]
     Active Substance: TOLVAPTAN
     Indication: RENAL IMPAIRMENT
     Route: 048
     Dates: start: 20131031, end: 20131115
  14. ALLEGRA [Concomitant]
     Active Substance: FEXOFENADINE HYDROCHLORIDE
     Indication: PRURITUS
     Dosage: 120 MG, UNK
     Route: 048
     Dates: start: 20141008
  15. EQUA [Suspect]
     Active Substance: VILDAGLIPTIN
     Indication: TYPE 2 DIABETES MELLITUS
     Dosage: 50 MG, QD
     Route: 048
     Dates: start: 20131031
  16. GLUFAST [Concomitant]
     Active Substance: MITIGLINIDE
     Indication: TYPE 2 DIABETES MELLITUS
     Dosage: 20 MG, UNK
     Route: 048
     Dates: start: 20131119, end: 20131124
  17. NOVORAPID [Concomitant]
     Active Substance: INSULIN ASPART
     Indication: TYPE 2 DIABETES MELLITUS
     Dosage: 80 IU, UNK
     Route: 065
     Dates: start: 20131125
  18. MUCOSTA [Concomitant]
     Active Substance: REBAMIPIDE
     Dosage: 300 MG, UNK
     Route: 048
  19. OZEX [Concomitant]
     Active Substance: TOSUFLOXACIN TOSYLATE
     Indication: CYSTITIS
     Dosage: 300 MG, UNK
     Route: 048
     Dates: end: 20140720
  20. LASIX [Concomitant]
     Active Substance: FUROSEMIDE
     Indication: RENAL IMPAIRMENT
     Route: 065
     Dates: end: 20140817
  21. ALDACTONE [Concomitant]
     Active Substance: SPIRONOLACTONE
     Indication: RENAL IMPAIRMENT
     Dosage: 25 MG, UNK
     Route: 048
     Dates: start: 20131112
  22. NEORAL [Suspect]
     Active Substance: CYCLOSPORINE
     Indication: RENAL IMPAIRMENT
     Dosage: 150 MG, QD
     Route: 048
     Dates: start: 20131205, end: 20131213
  23. NOVORAPID [Concomitant]
     Active Substance: INSULIN ASPART
     Dosage: 68 IU, UNK
     Route: 065
  24. LOXONIN [Concomitant]
     Active Substance: LOXOPROFEN SODIUM
     Dosage: 180 MG, UNK
     Route: 048
     Dates: end: 20141026
  25. MUCOSTA [Concomitant]
     Active Substance: REBAMIPIDE
     Indication: TYPE 2 DIABETES MELLITUS
     Dosage: 300 MG, UNK
     Route: 048
     Dates: start: 20140808
  26. MUCOSTA [Concomitant]
     Active Substance: REBAMIPIDE
     Dosage: 300 MG, UNK
     Route: 048
  27. FLOMOX//CEFCAPENE PIVOXIL HYDROCHLORIDE [Concomitant]
     Active Substance: CEFCAPENE PIVOXIL HYDROCHLORIDE HYDRATE
     Indication: CYSTITIS
     Dosage: 300 MG, UNK
     Route: 048
  28. MEDICON (DEXTROMETHORPHAN HYDROBROMIDE) [Concomitant]
     Active Substance: DEXTROMETHORPHAN HYDROBROMIDE
     Dosage: 45 MG, UNK
     Route: 048
     Dates: end: 20141026
  29. ALFAROL [Concomitant]
     Active Substance: ALFACALCIDOL
     Indication: PROPHYLAXIS
     Route: 048
  30. PREDONINE [Concomitant]
     Active Substance: PREDNISOLONE\PREDNISOLONE ACETATE\PREDNISOLONE SODIUM SUCCINATE
     Indication: RENAL IMPAIRMENT
     Route: 065
  31. ALBUMIN (HUMAN). [Concomitant]
     Active Substance: ALBUMIN (HUMAN)
     Indication: RENAL IMPAIRMENT
     Dosage: 10 G, UNK
     Route: 065
     Dates: start: 20131030, end: 20131030
  32. LOXONIN [Concomitant]
     Active Substance: LOXOPROFEN SODIUM
     Indication: TYPE 2 DIABETES MELLITUS
     Dosage: 180 MG, UNK
     Route: 048
     Dates: start: 20140808
  33. FLOMOX//CEFCAPENE PIVOXIL HYDROCHLORIDE [Concomitant]
     Active Substance: CEFCAPENE PIVOXIL HYDROCHLORIDE HYDRATE
     Dosage: 200 MG, UNK
     Route: 048
  34. FLOMOX//CEFCAPENE PIVOXIL HYDROCHLORIDE [Concomitant]
     Active Substance: CEFCAPENE PIVOXIL HYDROCHLORIDE HYDRATE
     Dosage: 200 MG, UNK
     Route: 048
  35. FLOMOX//CEFCAPENE PIVOXIL HYDROCHLORIDE [Concomitant]
     Active Substance: CEFCAPENE PIVOXIL HYDROCHLORIDE HYDRATE
     Dosage: 200 MG, UNK
     Route: 048
     Dates: end: 20140720
  36. AZILVA [Concomitant]
     Active Substance: AZILSARTAN KAMEDOXOMIL
     Indication: HYPERTENSION
     Dosage: 20 MG, UNK
     Route: 048
     Dates: start: 20131221
  37. BONALON [Concomitant]
     Active Substance: ALENDRONATE SODIUM
     Indication: PROPHYLAXIS
     Route: 048
     Dates: start: 20140613
  38. MUCOSTA [Concomitant]
     Active Substance: REBAMIPIDE
     Dosage: 300 MG, UNK
     Route: 048
     Dates: end: 20140518
  39. OZEX [Concomitant]
     Active Substance: TOSUFLOXACIN TOSYLATE
     Indication: TYPE 2 DIABETES MELLITUS
     Dosage: 300 MG, UNK
     Route: 048
     Dates: start: 20140912
  40. MUCOSAL-L [Concomitant]
     Indication: TYPE 2 DIABETES MELLITUS
     Dosage: 45 MG, UNK
     Route: 048
     Dates: start: 20140912, end: 20140921
  41. FLOMOX//CEFCAPENE PIVOXIL HYDROCHLORIDE [Concomitant]
     Active Substance: CEFCAPENE PIVOXIL HYDROCHLORIDE HYDRATE
     Dosage: 200 MG, UNK
     Route: 048
  42. WARFARIN POTASSIUM [Concomitant]
     Active Substance: WARFARIN POTASSIUM
     Indication: PROPHYLAXIS
     Route: 048
  43. BREDININ [Concomitant]
     Active Substance: MIZORIBINE
     Indication: RENAL IMPAIRMENT
     Route: 048
     Dates: start: 20140107

REACTIONS (4)
  - Compression fracture [Not Recovered/Not Resolved]
  - Blood glucose increased [Unknown]
  - Nasopharyngitis [Recovering/Resolving]
  - Back pain [Not Recovered/Not Resolved]

NARRATIVE: CASE EVENT DATE: 20131209
